FAERS Safety Report 5019864-6 (Version None)
Quarter: 2006Q2

REPORT INFORMATION
  Report Type: 
  Country: None (occurrence: None)
  Receive Date: 20060607
  Receipt Date: 20060530
  Transmission Date: 20061013
  Serious: Yes (Other)
  Sender: FDA-Public Use
  Company Number: JP-BOEHRINGER INGELHEIM PHARMACEUTICALS, INC.-2006-BP-06236YA

PATIENT
  Age: 87 Year
  Sex: Male

DRUGS (3)
  1. HARNAL (TAMSULOSIN) ORODISPERSABLE CR [Suspect]
     Indication: BENIGN PROSTATIC HYPERPLASIA
     Route: 048
     Dates: end: 20060201
  2. HARNAL (TAMSULOSIN) ORODISPERSABLE CR [Suspect]
     Indication: DYSURIA
  3. HARNAL [Suspect]
     Indication: BENIGN PROSTATIC HYPERPLASIA
     Route: 048
     Dates: start: 20050101

REACTIONS (3)
  - ASTHENIA [None]
  - CARDIAC FAILURE [None]
  - CONCOMITANT DISEASE PROGRESSION [None]
